FAERS Safety Report 6042274-X (Version None)
Quarter: 2009Q1

REPORT INFORMATION
  Report Type: 
  Country: None (occurrence: None)
  Receive Date: 20090116
  Receipt Date: 20090107
  Transmission Date: 20090719
  Serious: Yes (Death, Other)
  Sender: FDA-Public Use
  Company Number: FR-BAXTER-2009BH000759

PATIENT
  Age: 24 Year
  Sex: Male

DRUGS (4)
  1. IFOSFAMIDE [Suspect]
     Indication: CHEMOTHERAPY
     Dosage: DOSE UNIT:GRAMS PER METERS SQUARED
  2. CISPLATIN [Suspect]
     Indication: CHEMOTHERAPY
  3. PACLITAXEL [Suspect]
     Indication: CHEMOTHERAPY
  4. ADRIAMYCIN PFS [Suspect]
     Indication: CHEMOTHERAPY

REACTIONS (4)
  - ANAEMIA [None]
  - CARDIAC FAILURE [None]
  - FEBRILE NEUTROPENIA [None]
  - MUCOSAL INFLAMMATION [None]
